FAERS Safety Report 5190336-1 (Version None)
Quarter: 2006Q4

REPORT INFORMATION
  Report Type: 
  Country: None (occurrence: None)
  Receive Date: 20061222
  Receipt Date: 20060926
  Transmission Date: 20070319
  Serious: Yes (Death)
  Sender: FDA-Public Use
  Company Number: NLWYE038627SEP06

PATIENT
  Sex: Female

DRUGS (2)
  1. ENBREL [Suspect]
     Indication: RHEUMATOID ARTHRITIS
     Dates: start: 20041218, end: 20051101
  2. ENBREL [Suspect]
     Dates: start: 20060101, end: 20060201

REACTIONS (2)
  - CARDIAC ARREST [None]
  - SURGERY [None]
